FAERS Safety Report 7501468-4 (Version None)
Quarter: 2011Q2

REPORT INFORMATION
  Report Type: 
  Country: None (occurrence: None)
  Receive Date: 20110524
  Receipt Date: 20090930
  Transmission Date: 20111010
  Serious: Yes (Hospitalization, Other)
  Sender: FDA-Public Use
  Company Number: US-BAYER-2011-006445

PATIENT
  Age: 52 Year
  Sex: Female
  Weight: 107 kg

DRUGS (16)
  1. TRASYLOL [Suspect]
     Indication: MITRAL VALVE REPLACEMENT
     Dosage: 2MILLION UNITS ADDED TO PRIME
     Route: 042
     Dates: start: 20051230, end: 20051230
  2. IBUPROFEN [Concomitant]
     Route: 048
  3. GLUCOPHAGE [Concomitant]
     Dosage: 1 G, UNK
     Route: 048
  4. LASIX [Concomitant]
     Dosage: 40 MG, UNK
     Route: 042
     Dates: start: 20051230
  5. DIOVAN [Concomitant]
     Dosage: 160/12.5 MG
     Route: 048
  6. ROCEPHIN [Concomitant]
     Dosage: 1 G, UNK
     Route: 042
     Dates: start: 20051222
  7. VISIPAQUE [IODINE,IODIXANOL] [Concomitant]
     Indication: ARTERIOGRAM CORONARY
     Dosage: 65 ML, UNK
     Dates: start: 20051228
  8. ACETYLSALICYLIC ACID SRT [Concomitant]
     Dosage: 325 MG, UNK
     Route: 048
     Dates: start: 20051222
  9. RED BLOOD CELLS [Concomitant]
     Dosage: 2 U, UNK
     Route: 042
     Dates: start: 20051230
  10. INSULIN ASPART [Concomitant]
     Dosage: 12 U, BID
     Route: 058
  11. PREMPRO [Concomitant]
     Dosage: 0.625/2.5 MG
     Route: 048
  12. LOPRESSOR [Concomitant]
     Dosage: 5 MG, UNK
     Route: 042
     Dates: start: 20051222, end: 20051222
  13. MANNITOL [Concomitant]
     Dosage: 12.5 G, UNK
     Route: 042
     Dates: start: 20051230
  14. KEFZOL [Concomitant]
     Dosage: 1 G, UNK
     Route: 042
     Dates: start: 20051230
  15. RIFAMPIN [Concomitant]
     Indication: TUBERCULIN TEST POSITIVE
     Dosage: UNK
     Dates: start: 20051227
  16. HEPARIN [Concomitant]
     Dosage: 540 MG, UNK
     Route: 042
     Dates: start: 20051230

REACTIONS (13)
  - FEAR [None]
  - NERVOUSNESS [None]
  - PAIN [None]
  - INJURY [None]
  - ANXIETY [None]
  - EMOTIONAL DISTRESS [None]
  - RENAL FAILURE [None]
  - UNEVALUABLE EVENT [None]
  - PSYCHIATRIC SYMPTOM [None]
  - DEPRESSION [None]
  - MULTI-ORGAN FAILURE [None]
  - RENAL INJURY [None]
  - FEAR OF DEATH [None]
